FAERS Safety Report 11899726 (Version 1)
Quarter: 2016Q1

REPORT INFORMATION
  Report Type: Report from Study
  Country: US (occurrence: US)
  Receive Date: 20160108
  Receipt Date: 20160108
  Transmission Date: 20160526
  Serious: No
  Sender: FDA-Public Use
  Company Number: US-ABBVIE-15P-163-1471303-00

PATIENT
  Sex: Female

DRUGS (3)
  1. COREG [Suspect]
     Active Substance: CARVEDILOL
     Route: 048
  2. COREG [Suspect]
     Active Substance: CARVEDILOL
     Indication: PRODUCT USED FOR UNKNOWN INDICATION
     Route: 065
  3. VIEKIRA PAK [Suspect]
     Active Substance: DASABUVIR\OMBITASVIR\PARITAPREVIR\RITONAVIR
     Indication: HEPATITIS C
     Dosage: IN THE MORNING AND IN THE EVENING
     Route: 048

REACTIONS (3)
  - Asthenia [Recovered/Resolved]
  - Depression [Recovered/Resolved]
  - Fatigue [Recovered/Resolved]
